FAERS Safety Report 8031573-8 (Version None)
Quarter: 2012Q1

REPORT INFORMATION
  Report Type: 
  Country: None (occurrence: None)
  Receive Date: 20120109
  Receipt Date: 20120104
  Transmission Date: 20120608
  Serious: Yes (Death)
  Sender: FDA-Public Use
  Company Number: US-CELGENEUS-163-21880-12010432

PATIENT
  Sex: Male
  Weight: 85.806 kg

DRUGS (9)
  1. VELCADE [Concomitant]
     Dosage: 3.5 MILLIGRAM
     Route: 041
  2. ASPIRIN [Concomitant]
     Dosage: 325 MILLIGRAM
     Route: 065
  3. TRAZODONE HCL [Concomitant]
     Dosage: 150 MILLIGRAM
     Route: 041
  4. REVLIMID [Suspect]
     Indication: MULTIPLE MYELOMA
     Dosage: 10 MILLIGRAM
     Route: 048
     Dates: start: 20100726, end: 20110101
  5. FLOMAX [Concomitant]
     Dosage: .4 MILLIGRAM
     Route: 065
  6. LANTUS [Concomitant]
     Dosage: 100 UNITS/ML
     Route: 065
  7. ALLOPURINOL [Concomitant]
     Dosage: 100 MILLIGRAM
     Route: 065
  8. DEXAMETHASONE [Concomitant]
     Dosage: 4 MILLIGRAM
     Route: 065
  9. NORVASC [Concomitant]
     Dosage: 5 MILLIGRAM
     Route: 065

REACTIONS (1)
  - DEATH [None]
